FAERS Safety Report 4715375-3 (Version None)
Quarter: 2005Q3

REPORT INFORMATION
  Report Type: 
  Country: None (occurrence: None)
  Receive Date: 20050715
  Receipt Date: 20050418
  Transmission Date: 20060218
  Serious: Yes (Hospitalization, Disabling)
  Sender: FDA-Public Use
  Company Number: US-MERCK-0504USA03514

PATIENT
  Age: 61 Year
  Sex: Female
  Weight: 64 kg

DRUGS (5)
  1. VIOXX [Suspect]
     Indication: OSTEOARTHRITIS
     Route: 048
     Dates: start: 19990101, end: 20030801
  2. VIOXX [Suspect]
     Route: 048
     Dates: start: 20020101, end: 20020101
  3. VIOXX [Suspect]
     Indication: PSORIATIC ARTHROPATHY
     Route: 048
     Dates: start: 19990101, end: 20030801
  4. VIOXX [Suspect]
     Route: 048
     Dates: start: 20020101, end: 20020101
  5. PREDNISONE [Concomitant]
     Route: 065

REACTIONS (18)
  - ANGINA UNSTABLE [None]
  - ANXIETY [None]
  - BLOOD CHOLESTEROL INCREASED [None]
  - FIBROMYALGIA [None]
  - HYPERLIPIDAEMIA [None]
  - HYPERTENSION [None]
  - HYPOACUSIS [None]
  - INSOMNIA [None]
  - JOINT SPRAIN [None]
  - MACULAR HOLE [None]
  - MYOCARDIAL INFARCTION [None]
  - PAIN [None]
  - PHOTOSENSITIVITY REACTION [None]
  - PSORIASIS [None]
  - RETINAL TEAR [None]
  - SELECTIVE IGA IMMUNODEFICIENCY [None]
  - SINUS DISORDER [None]
  - TENOSYNOVITIS [None]
